FAERS Safety Report 8277404-2 (Version None)
Quarter: 2012Q2

REPORT INFORMATION
  Report Type: 
  Country: None (occurrence: None)
  Receive Date: 20120412
  Receipt Date: 20120410
  Transmission Date: 20120825
  Serious: Yes (Other)
  Sender: FDA-Public Use
  Company Number: US-ROXANE LABORATORIES, INC.-2012-RO-01020RO

PATIENT
  Age: 61 Year
  Sex: Male

DRUGS (1)
  1. LITHIUM CARBONATE [Suspect]

REACTIONS (2)
  - NEPHROPATHY [None]
  - RENAL CYST [None]
